FAERS Safety Report 9274772 (Version 1)
Quarter: 2013Q2

REPORT INFORMATION
  Report Type: Spontaneous
  Country: BR (occurrence: BR)
  Receive Date: 20130507
  Receipt Date: 20130507
  Transmission Date: 20140414
  Serious: Yes (Other)
  Sender: FDA-Public Use
  Company Number: BR-ACCORD-017510

PATIENT
  Age: 72 Year
  Sex: Female
  Weight: 97.9 kg

DRUGS (1)
  1. PACLITAXEL [Suspect]
     Indication: BREAST CANCER
     Route: 042
     Dates: start: 20130404, end: 20130404

REACTIONS (5)
  - Hypertension [Recovered/Resolved]
  - Tachycardia [Recovered/Resolved]
  - Rash [Recovered/Resolved]
  - Erythema [Unknown]
  - Myalgia [Unknown]
